FAERS Safety Report 8250722-X (Version None)
Quarter: 2012Q1

REPORT INFORMATION
  Report Type: 
  Country: None (occurrence: None)
  Receive Date: 20120328
  Receipt Date: 20120313
  Transmission Date: 20120608
  Serious: Yes (Hospitalization)
  Sender: FDA-Public Use
  Company Number: CA-006449

PATIENT
  Age: 85 Year
  Sex: Male

DRUGS (7)
  1. ASPIRIN [Concomitant]
  2. PANTOPRAZOLE SODIUM [Concomitant]
  3. LOPRESSOR [Concomitant]
  4. FIRMAGON [Suspect]
     Indication: PROSTATE CANCER
     Dosage: 240 MG 1X SUBCUTANEOUS, (80 MG 1X/MONTH SUBCUTANEOUS)
     Route: 058
     Dates: start: 20110705
  5. CLOPIDOGREL [Concomitant]
  6. ACETAMINOPHEN [Concomitant]
  7. BICALUTAMIDE [Concomitant]

REACTIONS (10)
  - ERYTHEMA [None]
  - BACK PAIN [None]
  - DIZZINESS [None]
  - POLLAKIURIA [None]
  - HEADACHE [None]
  - INJECTION SITE SWELLING [None]
  - HOT FLUSH [None]
  - FATIGUE [None]
  - PAIN IN EXTREMITY [None]
  - GAIT DISTURBANCE [None]
